FAERS Safety Report 4777990-0 (Version None)
Quarter: 2005Q3

REPORT INFORMATION
  Report Type: 
  Country: None (occurrence: None)
  Receive Date: 20050921
  Receipt Date: 20050901
  Transmission Date: 20060218
  Serious: Yes (Hospitalization)
  Sender: FDA-Public Use
  Company Number: GBS050918334

PATIENT
  Age: 19 Year
  Sex: Female

DRUGS (2)
  1. STRATTERA [Suspect]
     Dosage: 1120 MG
  2. CITALOPRAM HYDROBROMIDE [Concomitant]

REACTIONS (3)
  - INTENTIONAL MISUSE [None]
  - MULTIPLE DRUG OVERDOSE [None]
  - WRONG DRUG ADMINISTERED [None]
